FAERS Safety Report 15324617 (Version 1)
Quarter: 2018Q3

REPORT INFORMATION
  Report Type: Spontaneous
  Country: US (occurrence: US)
  Receive Date: 20180828
  Receipt Date: 20180828
  Transmission Date: 20181010
  Serious: No
  Sender: FDA-Public Use
  Company Number: US-PFIZER INC-2018342485

PATIENT
  Age: 83 Year
  Sex: Female

DRUGS (3)
  1. GARLIC [ALLIUM SATIVUM] [Concomitant]
     Indication: INFLAMMATION
     Dosage: UNKNOWN
  2. NORVASC [Suspect]
     Active Substance: AMLODIPINE BESYLATE
     Indication: HYPERTENSION
     Dosage: 2.5 MG, 1X/DAY
     Route: 048
     Dates: start: 201808
  3. VITAMINS NOS [Concomitant]
     Active Substance: VITAMINS
     Dosage: UNKNOWN

REACTIONS (1)
  - Blood pressure fluctuation [Not Recovered/Not Resolved]
